FAERS Safety Report 9412938 (Version 2)
Quarter: 2013Q2

REPORT INFORMATION
  Report Type: Spontaneous
  Country: US (occurrence: None)
  Receive Date: 20130515
  Receipt Date: 20130515
  Transmission Date: 20140414
  Serious: Yes (Life-Threatening, Other)
  Sender: FDA-Public Use
  Company Number: 2013035804

PATIENT
  Age: 25 Year
  Sex: Female
  Weight: 45.36 kg

DRUGS (9)
  1. BERINERT [Suspect]
     Indication: HEREDITARY ANGIOEDEMA
     Dosage: 1X/3 DAYS, ONCE EVERY THREE DAYS; 4 L/MIN? (NOT OTHERWISE SPECIFIED)
     Route: 042
     Dates: start: 20130428
  2. DIPHENHYDRAMINE (DIPHENHYDRAMINE) [Concomitant]
  3. HEPARIN (HEPARIN) [Concomitant]
  4. SODIUM CHLORIDE [Concomitant]
  5. EPI-PEN (EPINEPHRINE HYDROCHLORIDE) [Concomitant]
  6. PATADAY (OLOPATADINE HYDROCHLORIDE) [Concomitant]
  7. PATANASE (OLOPATADINE) [Concomitant]
  8. METHYLPREDNISOLONE (METHYLPREDNISOLONE) [Concomitant]
  9. AFRIN (OXYMETAZOLINE) [Concomitant]

REACTIONS (15)
  - Off label use [None]
  - Malaise [None]
  - Pyrexia [None]
  - Dysphagia [None]
  - Fatigue [None]
  - Pain [None]
  - Headache [None]
  - Oropharyngeal pain [None]
  - Chest discomfort [None]
  - Self-medication [None]
  - Hereditary angioedema [None]
  - Product contamination [None]
  - Suspected transmission of an infectious agent via product [None]
  - Abdominal distension [None]
  - Pharyngeal disorder [None]
